FAERS Safety Report 4290117-7 (Version None)
Quarter: 2004Q1

REPORT INFORMATION
  Report Type: 
  Country: None (occurrence: None)
  Receive Date: 20040210
  Receipt Date: 20040202
  Transmission Date: 20041129
  Serious: Yes (Other)
  Sender: FDA-Public Use
  Company Number: GB-ROCHE-357761

PATIENT
  Age: 34 Year
  Sex: Male
  Weight: 75.9 kg

DRUGS (5)
  1. PEG-INTERFERON ALFA 2A (RO 25-8310) [Suspect]
     Route: 058
     Dates: start: 20020619, end: 20021106
  2. PEG-INTERFERON ALFA 2A (RO 25-8310) [Suspect]
     Route: 058
     Dates: start: 20021112
  3. RIBAVIRIN [Suspect]
     Route: 048
     Dates: start: 20020619
  4. PAROXETINE [Concomitant]
     Dates: start: 20021029
  5. TEMAZEPAM [Concomitant]
     Dates: start: 20021029

REACTIONS (1)
  - FACIAL PALSY [None]
